FAERS Safety Report 19654092 (Version 1)
Quarter: 2021Q3

REPORT INFORMATION
  Report Type: Report from Study
  Country: None (occurrence: US)
  Receive Date: 20210803
  Receipt Date: 20210803
  Transmission Date: 20211014
  Serious: Yes (Other)
  Sender: FDA-Public Use
  Company Number: US-ABBVIE-20P-163-3704574-00

PATIENT
  Age: 59 Year
  Sex: Female
  Weight: 57.6 kg

DRUGS (11)
  1. OBINUTUZUMAB. [Concomitant]
     Active Substance: OBINUTUZUMAB
     Dosage: DAY 8, CYCLE 1
     Route: 042
     Dates: start: 20200224, end: 20200224
  2. OBINUTUZUMAB. [Concomitant]
     Active Substance: OBINUTUZUMAB
     Dosage: DAY 15, CYCLE 1
     Route: 042
     Dates: start: 20200302, end: 20200302
  3. VENETOCLAX. [Suspect]
     Active Substance: VENETOCLAX
     Dosage: DAYS 15?21, CYCLE 3
     Route: 048
     Dates: start: 20200527, end: 20200602
  4. IBRUTINIB [Suspect]
     Active Substance: IBRUTINIB
     Indication: CHRONIC LYMPHOCYTIC LEUKAEMIA
     Dosage: DAYS 1?28, CYCLES 1?19
     Route: 048
     Dates: start: 20200218
  5. VENETOCLAX. [Suspect]
     Active Substance: VENETOCLAX
     Dosage: DAYS 1?28 CYCLE 4?14
     Route: 048
     Dates: start: 20200610, end: 20200706
  6. VENETOCLAX. [Suspect]
     Active Substance: VENETOCLAX
     Dosage: DAYS 22?28, CYCLE 3
     Route: 048
     Dates: start: 20200603, end: 20200609
  7. OBINUTUZUMAB. [Concomitant]
     Active Substance: OBINUTUZUMAB
     Indication: CHRONIC LYMPHOCYTIC LEUKAEMIA
     Dosage: DAY 1 CYCLE 1
     Route: 042
     Dates: start: 20200218, end: 20200218
  8. VENETOCLAX. [Suspect]
     Active Substance: VENETOCLAX
     Dosage: DAYS 8?14, CYCLE 3
     Route: 048
     Dates: start: 20200520, end: 20200526
  9. VENETOCLAX. [Suspect]
     Active Substance: VENETOCLAX
     Indication: CHRONIC LYMPHOCYTIC LEUKAEMIA
     Dosage: DAYS 1?7, CYCLE 3
     Route: 048
     Dates: start: 20200513, end: 20200519
  10. OBINUTUZUMAB. [Concomitant]
     Active Substance: OBINUTUZUMAB
     Dosage: DAY 2 CYCLE 1
     Route: 042
     Dates: start: 20200219, end: 20200219
  11. OBINUTUZUMAB. [Concomitant]
     Active Substance: OBINUTUZUMAB
     Dosage: DAY 1, CYCLE 2?6
     Route: 042

REACTIONS (2)
  - White blood cell count decreased [Recovered/Resolved]
  - Neutrophil count decreased [Recovered/Resolved]

NARRATIVE: CASE EVENT DATE: 20200707
